FAERS Safety Report 19156747 (Version 1)
Quarter: 2021Q2

REPORT INFORMATION
  Report Type: Spontaneous
  Country: FR (occurrence: FR)
  Receive Date: 20210420
  Receipt Date: 20210420
  Transmission Date: 20210717
  Serious: Yes (Other)
  Sender: FDA-Public Use
  Company Number: FR-TEVA-2021-FR-1901735

PATIENT
  Age: 85 Year
  Sex: Female
  Weight: 57 kg

DRUGS (7)
  1. LEVOTHYROXINE SODIQUE [Concomitant]
     Active Substance: LEVOTHYROXINE SODIUM
  2. CALCIUM (ACETATE DE) [Concomitant]
     Active Substance: CALCIUM ACETATE
  3. MODERNA COVID?19 VACCINE [Suspect]
     Active Substance: CX-024414
     Indication: COVID-19 IMMUNISATION
     Dosage: LEFT DELTOID:UNIT DOSE:1DOSAGEFORM
     Route: 030
     Dates: start: 20210304, end: 20210304
  4. SOTALOL (CHLORHYDRATE DE) [Suspect]
     Active Substance: SOTALOL
     Route: 065
  5. TARDYFERON [Concomitant]
     Active Substance: FERROUS SULFATE
  6. KARDEGIC [Concomitant]
     Active Substance: ASPIRIN DL-LYSINE
  7. RISEDRONATE MONOSODIQUE [Concomitant]
     Active Substance: RISEDRONATE SODIUM

REACTIONS (1)
  - Malaise [Recovered/Resolved]

NARRATIVE: CASE EVENT DATE: 20210306
